FAERS Safety Report 11228684 (Version 1)
Quarter: 2015Q2

REPORT INFORMATION
  Report Type: Spontaneous
  Country: US (occurrence: US)
  Receive Date: 20150630
  Receipt Date: 20150630
  Transmission Date: 20150821
  Serious: No
  Sender: FDA-Public Use
  Company Number: US-MEDA-2015020070

PATIENT
  Sex: Female

DRUGS (1)
  1. SOMA [Suspect]
     Active Substance: CARISOPRODOL
     Indication: INSOMNIA

REACTIONS (4)
  - Migraine [Unknown]
  - Restless legs syndrome [Unknown]
  - Drug ineffective for unapproved indication [Unknown]
  - Off label use [Unknown]
